FAERS Safety Report 12775280 (Version 2)
Quarter: 2016Q3

REPORT INFORMATION
  Report Type: Spontaneous
  Country: US (occurrence: US)
  Receive Date: 20160923
  Receipt Date: 20160929
  Transmission Date: 20161109
  Serious: Yes (Hospitalization)
  Sender: FDA-Public Use
  Company Number: US-JNJFOC-20160918295

PATIENT
  Age: 63 Year
  Sex: Male
  Weight: 56.7 kg

DRUGS (6)
  1. QUINAPRIL. [Concomitant]
     Active Substance: QUINAPRIL
     Indication: ANGIOPATHY
     Route: 065
  2. ATORVASTATIN [Concomitant]
     Active Substance: ATORVASTATIN
     Indication: ANGIOPATHY
     Dosage: HALF A TABLET TWICE A DAY.
     Route: 065
  3. INVOKANA [Suspect]
     Active Substance: CANAGLIFLOZIN
     Indication: TYPE 2 DIABETES MELLITUS
     Route: 048
     Dates: start: 201609
  4. PIOGLITAZONE. [Concomitant]
     Active Substance: PIOGLITAZONE
     Indication: ANGIOPATHY
     Dosage: HALF A TABLET TWICE A DAY.
     Route: 065
  5. INVOKANA [Suspect]
     Active Substance: CANAGLIFLOZIN
     Indication: TYPE 2 DIABETES MELLITUS
     Route: 048
     Dates: start: 201609, end: 201609
  6. METFORMIN [Concomitant]
     Active Substance: METFORMIN HYDROCHLORIDE
     Indication: DIABETES MELLITUS
     Route: 065

REACTIONS (2)
  - Product lot number issue [Unknown]
  - Ketoacidosis [Unknown]

NARRATIVE: CASE EVENT DATE: 201609
